FAERS Safety Report 25558447 (Version 1)
Quarter: 2025Q3

REPORT INFORMATION
  Report Type: Spontaneous
  Country: US (occurrence: US)
  Receive Date: 20250715
  Receipt Date: 20250715
  Transmission Date: 20251020
  Serious: No
  Sender: INTRABIO
  Company Number: US-IBO-202500067

PATIENT
  Age: 32 Year
  Sex: Male
  Weight: 65 kg

DRUGS (6)
  1. AQNEURSA [Suspect]
     Active Substance: LEVACETYLLEUCINE
     Route: 065
     Dates: start: 20250212
  2. TRAZODONE [Concomitant]
     Active Substance: TRAZODONE HYDROCHLORIDE
     Indication: Product used for unknown indication
     Route: 065
  3. Gemtesa, [Concomitant]
     Indication: Product used for unknown indication
     Route: 065
  4. TRIHEXYPHENIDYL [Concomitant]
     Active Substance: TRIHEXYPHENIDYL
     Indication: Product used for unknown indication
     Route: 065
  5. MIPLYFFA [Concomitant]
     Active Substance: ARIMOCLOMOL CITRATE
     Indication: Product used for unknown indication
     Route: 065
  6. MIGLUSTAT [Concomitant]
     Active Substance: MIGLUSTAT
     Indication: Product used for unknown indication
     Route: 065

REACTIONS (1)
  - Insomnia [Unknown]
